FAERS Safety Report 24020841 (Version 1)
Quarter: 2024Q2

REPORT INFORMATION
  Report Type: Spontaneous
  Country: US (occurrence: US)
  Receive Date: 20240627
  Receipt Date: 20240627
  Transmission Date: 20240716
  Serious: Yes (Life-Threatening, Hospitalization)
  Sender: FDA-Public Use
  Company Number: US-BRISTOL-MYERS SQUIBB COMPANY-2024-102162

PATIENT
  Age: 75 Year
  Sex: Male

DRUGS (3)
  1. ELIQUIS [Suspect]
     Active Substance: APIXABAN
     Indication: Product used for unknown indication
  2. ELIQUIS [Suspect]
     Active Substance: APIXABAN
     Dates: start: 20240623
  3. LENVATINIB [Concomitant]
     Active Substance: LENVATINIB
     Indication: Thyroid neoplasm

REACTIONS (1)
  - Epistaxis [Recovered/Resolved]
